FAERS Safety Report 5378355-3 (Version None)
Quarter: 2007Q3

REPORT INFORMATION
  Report Type: 
  Country: None (occurrence: None)
  Receive Date: 20070705
  Receipt Date: 20070628
  Transmission Date: 20080115
  Serious: Yes (Other)
  Sender: FDA-Public Use
  Company Number: US-BAYER-200711423BWH

PATIENT
  Age: 72 Year
  Sex: Male

DRUGS (1)
  1. NEXAVAR [Suspect]
     Indication: METASTATIC RENAL CELL CARCINOMA
     Route: 048
     Dates: start: 20051214

REACTIONS (9)
  - BASAL CELL CARCINOMA [None]
  - CHEILITIS [None]
  - DRY SKIN [None]
  - ERYTHEMA [None]
  - FIBROSIS [None]
  - HYPERKERATOSIS [None]
  - RASH [None]
  - SKIN LESION [None]
  - SQUAMOUS CELL CARCINOMA [None]
